FAERS Safety Report 24439505 (Version 1)
Quarter: 2024Q4

REPORT INFORMATION
  Report Type: Spontaneous
  Country: FR (occurrence: FR)
  Receive Date: 20241015
  Receipt Date: 20241015
  Transmission Date: 20250115
  Serious: Yes (Hospitalization)
  Sender: BAUSCH AND LOMB
  Company Number: None

PATIENT
  Age: 77 Year
  Sex: Female
  Weight: 61 kg

DRUGS (13)
  1. VENLAFAXINE [Suspect]
     Active Substance: VENLAFAXINE HYDROCHLORIDE
     Indication: Depression
     Route: 048
  2. ZOPICLONE [Suspect]
     Active Substance: ZOPICLONE
     Indication: Insomnia
     Route: 048
     Dates: end: 20230629
  3. NEFOPAM HYDROCHLORIDE [Suspect]
     Active Substance: NEFOPAM HYDROCHLORIDE
     Indication: Pain
     Route: 030
     Dates: end: 20230703
  4. FENTANYL [Suspect]
     Active Substance: FENTANYL
     Indication: Pain
     Dosage: NOT SPECIFIED?DUROGESIC 50 MICROGRAMS/HOUR (8.4 MG/21 CM?), TRANSDERMAL PATCH
     Route: 062
     Dates: end: 20230629
  5. ALMOTRIPTAN [Suspect]
     Active Substance: ALMOTRIPTAN
     Indication: Migraine
     Route: 048
     Dates: end: 20230629
  6. PRAZEPAM [Suspect]
     Active Substance: PRAZEPAM
     Indication: Anxiety
     Route: 048
  7. TEGRETOL [Suspect]
     Active Substance: CARBAMAZEPINE
     Indication: Trigeminal neuralgia
     Dosage: TEGRETOL 200 MG, SCORED TABLET
     Route: 048
  8. PANTOPRAZOLE [Concomitant]
     Active Substance: PANTOPRAZOLE
     Indication: Product used for unknown indication
  9. ENALAPRIL [Concomitant]
     Active Substance: ENALAPRIL
     Indication: Product used for unknown indication
  10. INDAPAMIDE [Concomitant]
     Active Substance: INDAPAMIDE
     Indication: Product used for unknown indication
  11. LERCANIDIPINE [Concomitant]
     Active Substance: LERCANIDIPINE
     Indication: Product used for unknown indication
  12. ACETAMINOPHEN [Concomitant]
     Active Substance: ACETAMINOPHEN
     Indication: Product used for unknown indication
  13. CLOPIDOGREL BESILATE [Concomitant]
     Active Substance: CLOPIDOGREL BESILATE
     Indication: Product used for unknown indication

REACTIONS (3)
  - Disorientation [Recovered/Resolved]
  - Disturbance in attention [Recovered/Resolved]
  - Somnolence [Recovered/Resolved]

NARRATIVE: CASE EVENT DATE: 20230616
